FAERS Safety Report 18032327 (Version 1)
Quarter: 2020Q3

REPORT INFORMATION
  Report Type: Spontaneous
  Country: GB (occurrence: GB)
  Receive Date: 20200716
  Receipt Date: 20200716
  Transmission Date: 20201103
  Serious: Yes (Other)
  Sender: FDA-Public Use
  Company Number: GB-GLAXOSMITHKLINE-GB2020131631

PATIENT
  Age: 83 Year
  Sex: Female
  Weight: 77.56 kg

DRUGS (1)
  1. FLIXONASE AQUEOUS NASAL SPRAY [Suspect]
     Active Substance: FLUTICASONE PROPIONATE
     Indication: UPPER-AIRWAY COUGH SYNDROME
     Dosage: 2 DF, QD (IN EACH NOSTRIL IN THE MORNING)
     Route: 045
     Dates: start: 20200426, end: 20200620

REACTIONS (1)
  - Vision blurred [Not Recovered/Not Resolved]

NARRATIVE: CASE EVENT DATE: 202006
